FAERS Safety Report 10195173 (Version 1)
Quarter: 2014Q2

REPORT INFORMATION
  Report Type: Spontaneous
  Country: DE (occurrence: DE)
  Receive Date: 20140526
  Receipt Date: 20140526
  Transmission Date: 20141212
  Serious: Yes (Other)
  Sender: FDA-Public Use
  Company Number: DE-DRREDDYS-GER/GER/14/0040537

PATIENT
  Age: 30 Year
  Sex: Female
  Weight: 87 kg

DRUGS (4)
  1. SERTRALINE [Suspect]
     Indication: BIPOLAR DISORDER
     Route: 048
     Dates: start: 20130304, end: 20130810
  2. SEROQUEL PROLONG [Suspect]
     Indication: BIPOLAR DISORDER
     Dosage: 150 [MG/D ]/ DOSAGE REDUCTION TO 50MG/D BEGINING IN SIXTH MONTH
     Route: 048
     Dates: start: 20121213, end: 20130810
  3. FEMIBION SCHWANGERSCHAFT 1 [Concomitant]
     Indication: PROPHYLAXIS OF NEURAL TUBE DEFECT
     Route: 048
     Dates: start: 20130115
  4. FEMIBION SCHWANGERSCHAFT 1 [Concomitant]

REACTIONS (4)
  - Foetal death [Recovered/Resolved]
  - Glucose tolerance impaired in pregnancy [Recovered/Resolved]
  - Placental insufficiency [Recovered/Resolved]
  - Exposure during pregnancy [Unknown]
